FAERS Safety Report 16164574 (Version 1)
Quarter: 2019Q2

REPORT INFORMATION
  Report Type: Report from Study
  Country: BE (occurrence: BE)
  Receive Date: 20190405
  Receipt Date: 20190405
  Transmission Date: 20190711
  Serious: Yes (Hospitalization, Other)
  Sender: FDA-Public Use
  Company Number: BE-SAOL THERAPEUTICS-0700859217

PATIENT
  Age: 73 Year
  Sex: Male
  Weight: 64.85 kg

DRUGS (3)
  1. LIORESAL [Suspect]
     Active Substance: BACLOFEN
     Indication: CEREBROVASCULAR ACCIDENT
     Dosage: 350 ?G, \DAY -FLEX
     Route: 037
     Dates: start: 20140813, end: 20140813
  2. LIORESAL [Suspect]
     Active Substance: BACLOFEN
     Dosage: 350.7 ?G, \DAY
     Route: 037
     Dates: end: 20150202
  3. LIORESAL [Suspect]
     Active Substance: BACLOFEN
     Dosage: 368.2 ?G, \DAY -FLEX
     Route: 037
     Dates: start: 20140813

REACTIONS (6)
  - Overdose [Recovered/Resolved]
  - Coma scale abnormal [Recovered/Resolved]
  - Hypersensitivity [Recovered/Resolved]
  - Toxicity to various agents [Recovered/Resolved]
  - Depressed level of consciousness [Recovered/Resolved]
  - Medication error [Recovered/Resolved]

NARRATIVE: CASE EVENT DATE: 20150202
